APPROVED DRUG PRODUCT: MODRASTANE
Active Ingredient: TRILOSTANE
Strength: 30MG
Dosage Form/Route: CAPSULE;ORAL
Application: N018719 | Product #002
Applicant: BIOENVISION INC
Approved: Dec 31, 1984 | RLD: No | RS: No | Type: DISCN